FAERS Safety Report 7499768-X (Version None)
Quarter: 2011Q2

REPORT INFORMATION
  Report Type: 
  Country: None (occurrence: None)
  Receive Date: 20110524
  Receipt Date: 20110509
  Transmission Date: 20111010
  Serious: Yes (Life-Threatening, Other)
  Sender: FDA-Public Use
  Company Number: US-ACTELION-A-US2011-48129

PATIENT

DRUGS (1)
  1. VENTAVIS [Suspect]
     Indication: PULMONARY ARTERIAL HYPERTENSION
     Dosage: 1 DOSE
     Route: 055
     Dates: start: 20110425, end: 20110425

REACTIONS (3)
  - ANXIETY [None]
  - DYSPNOEA [None]
  - THROAT TIGHTNESS [None]
